FAERS Safety Report 11309574 (Version 2)
Quarter: 2016Q1

REPORT INFORMATION
  Report Type: Report from Study
  Country: US (occurrence: US)
  Receive Date: 20150724
  Receipt Date: 20160113
  Transmission Date: 20160525
  Serious: Yes (Other)
  Sender: FDA-Public Use
  Company Number: US-JNJFOC-20150713857

PATIENT
  Age: 62 Year
  Sex: Female
  Weight: 78.93 kg

DRUGS (28)
  1. SYMBICORT [Concomitant]
     Active Substance: BUDESONIDE\FORMOTEROL FUMARATE DIHYDRATE
     Indication: RESPIRATORY DISTRESS
     Route: 065
     Dates: start: 201401
  2. RESTORIL [Concomitant]
     Active Substance: TEMAZEPAM
     Indication: INSOMNIA
     Dosage: NIGHTLY AS NEEDED
     Route: 048
     Dates: start: 201401
  3. NEXIUM [Concomitant]
     Active Substance: ESOMEPRAZOLE MAGNESIUM
     Indication: GASTROOESOPHAGEAL REFLUX DISEASE
     Route: 065
     Dates: start: 2004
  4. CELEBREX [Concomitant]
     Active Substance: CELECOXIB
     Indication: PAIN
     Route: 065
     Dates: start: 2006
  5. LYRICA [Concomitant]
     Active Substance: PREGABALIN
     Indication: PAIN
     Route: 065
     Dates: start: 2014
  6. METHOTREXATE SODIUM. [Concomitant]
     Active Substance: METHOTREXATE SODIUM
     Indication: RHEUMATOID ARTHRITIS
     Dosage: ROUTE: UNDER SKIN
     Route: 065
     Dates: start: 1998
  7. PREDNISONE. [Concomitant]
     Active Substance: PREDNISONE
     Indication: RESPIRATORY DISORDER
     Route: 048
     Dates: start: 199901
  8. REMICADE [Suspect]
     Active Substance: INFLIXIMAB
     Indication: RHEUMATOID ARTHRITIS
     Route: 042
     Dates: start: 201503, end: 201505
  9. SYNTHROID [Concomitant]
     Active Substance: LEVOTHYROXINE SODIUM
     Indication: HYPOTHYROIDISM
     Route: 048
     Dates: start: 2005
  10. MORPHINE [Concomitant]
     Active Substance: MORPHINE
     Indication: RHEUMATOID ARTHRITIS
     Route: 048
     Dates: start: 1999, end: 201506
  11. OXYCODONE [Concomitant]
     Active Substance: OXYCODONE
     Indication: RHEUMATOID ARTHRITIS
     Route: 048
     Dates: start: 1999
  12. ARAVA [Concomitant]
     Active Substance: LEFLUNOMIDE
     Indication: RHEUMATOID ARTHRITIS
     Route: 048
     Dates: start: 1994
  13. ARAVA [Concomitant]
     Active Substance: LEFLUNOMIDE
     Indication: RHEUMATOID ARTHRITIS
     Route: 048
     Dates: start: 2014
  14. MORPHINE [Concomitant]
     Active Substance: MORPHINE
     Indication: PAIN
     Route: 048
     Dates: start: 1999, end: 201506
  15. MORPHINE [Concomitant]
     Active Substance: MORPHINE
     Indication: OSTEONECROSIS
     Route: 048
     Dates: start: 2011
  16. MORPHINE [Concomitant]
     Active Substance: MORPHINE
     Indication: OSTEONECROSIS
     Route: 048
     Dates: start: 1999, end: 201506
  17. MORPHINE [Concomitant]
     Active Substance: MORPHINE
     Indication: RHEUMATOID ARTHRITIS
     Route: 048
     Dates: start: 2011
  18. TREXIMET [Concomitant]
     Active Substance: NAPROXEN SODIUM\SUMATRIPTAN SUCCINATE
     Indication: MIGRAINE
     Route: 065
     Dates: start: 2013
  19. FOSAMAX [Concomitant]
     Active Substance: ALENDRONATE SODIUM
     Indication: OSTEONECROSIS
     Route: 065
     Dates: start: 2015
  20. ALBUTEROL. [Concomitant]
     Active Substance: ALBUTEROL
     Indication: ASTHMA
     Dosage: TWICE DAILY, THEN EVERY 6 HOURS AS NEEDED
     Route: 055
     Dates: start: 2014
  21. LISINOPRIL. [Concomitant]
     Active Substance: LISINOPRIL
     Indication: HYPERTENSION
     Route: 048
     Dates: start: 2008
  22. SYMBICORT [Concomitant]
     Active Substance: BUDESONIDE\FORMOTEROL FUMARATE DIHYDRATE
     Indication: ASTHMA
     Route: 065
     Dates: start: 201401
  23. VENTOLIN HFA [Concomitant]
     Active Substance: ALBUTEROL SULFATE
     Indication: RESPIRATORY DISTRESS
     Route: 065
     Dates: start: 201401
  24. PREDNISONE. [Concomitant]
     Active Substance: PREDNISONE
     Indication: RHEUMATOID ARTHRITIS
     Route: 048
     Dates: start: 199901
  25. ROXICODONE [Concomitant]
     Active Substance: OXYCODONE HYDROCHLORIDE
     Indication: PAIN
     Route: 065
     Dates: start: 2011
  26. ASPIRIN. [Concomitant]
     Active Substance: ASPIRIN
     Indication: CARDIOVASCULAR DISORDER
     Route: 065
     Dates: start: 2004
  27. REMICADE [Suspect]
     Active Substance: INFLIXIMAB
     Indication: RHEUMATOID ARTHRITIS
     Route: 042
     Dates: start: 20150208, end: 20150514
  28. MORPHINE [Concomitant]
     Active Substance: MORPHINE
     Indication: PAIN
     Route: 048
     Dates: start: 2011

REACTIONS (4)
  - Gait disturbance [Not Recovered/Not Resolved]
  - Adverse drug reaction [Recovered/Resolved]
  - Physical disability [Not Recovered/Not Resolved]
  - Drug effect decreased [Unknown]

NARRATIVE: CASE EVENT DATE: 201503
